FAERS Safety Report 17216648 (Version 2)
Quarter: 2020Q2

REPORT INFORMATION
  Report Type: Spontaneous
  Country: US (occurrence: US)
  Receive Date: 20191230
  Receipt Date: 20200522
  Transmission Date: 20200713
  Serious: Yes (Other)
  Sender: FDA-Public Use
  Company Number: ALC2019US003033

PATIENT
  Sex: Female

DRUGS (1)
  1. ICAPS AREDS 2 [Suspect]
     Active Substance: MINERALS\VITAMINS
     Indication: PRODUCT USED FOR UNKNOWN INDICATION
     Dosage: UNK
     Route: 065

REACTIONS (3)
  - Choking [Recovered/Resolved]
  - Product size issue [Recovered/Resolved]
  - Dysphagia [Recovered/Resolved]
